FAERS Safety Report 10129026 (Version 1)
Quarter: 2014Q2

REPORT INFORMATION
  Report Type: Spontaneous
  Country: US (occurrence: None)
  Receive Date: 20140424
  Receipt Date: 20140424
  Transmission Date: 20141212
  Serious: No
  Sender: FDA-Public Use
  Company Number: None

PATIENT
  Sex: Female

DRUGS (1)
  1. QUETIAPINE FUMARATE 300MG TABLETS [Suspect]

REACTIONS (2)
  - Drug ineffective [None]
  - Product substitution issue [None]
